FAERS Safety Report 18163420 (Version 2)
Quarter: 2020Q4

REPORT INFORMATION
  Report Type: Report from Study
  Country: DE (occurrence: DE)
  Receive Date: 20200818
  Receipt Date: 20201105
  Transmission Date: 20210113
  Serious: Yes (Death, Life-Threatening, Hospitalization)
  Sender: FDA-Public Use
  Company Number: DE-BAXTER-2020BAX016513

PATIENT
  Age: 75 Year
  Sex: Male
  Weight: 77.9 kg

DRUGS (60)
  1. ENDOXAN 1G [Suspect]
     Active Substance: CYCLOPHOSPHAMIDE
     Indication: PLASMA CELL MYELOMA
     Dosage: INJECTION FOR INFUSION, FIRST LINE CYCLICAL THERAPY WITH 3 CYCLES, NOT PROVIDED
     Route: 065
     Dates: start: 201706, end: 201707
  2. MEROPENEM. [Concomitant]
     Active Substance: MEROPENEM
     Dosage: CRS THERAPY
     Route: 065
     Dates: start: 20200521
  3. NOXAFIL [Concomitant]
     Active Substance: POSACONAZOLE
     Dosage: CRS THERAPY
     Route: 065
     Dates: start: 20200521
  4. G-CSF [Concomitant]
     Active Substance: GRANULOCYTE COLONY-STIMULATING FACTOR NOS
     Indication: PRODUCT USED FOR UNKNOWN INDICATION
     Dosage: NOT PROVIDED
     Route: 065
  5. ETOPOSIDE. [Concomitant]
     Active Substance: ETOPOSIDE
     Dosage: DAYS 4-7
     Route: 065
     Dates: start: 201912
  6. DOXORUBICIN [Concomitant]
     Active Substance: DOXORUBICIN
     Dosage: DAYS 1-4
     Route: 065
     Dates: start: 201901
  7. DOXORUBICIN [Concomitant]
     Active Substance: DOXORUBICIN
     Dosage: DAYS 1-4
     Route: 065
     Dates: start: 201902
  8. DEXAMETHASONE. [Concomitant]
     Active Substance: DEXAMETHASONE
     Indication: PLASMA CELL MYELOMA
     Route: 065
     Dates: start: 20200518, end: 20200518
  9. VELCADE [Concomitant]
     Active Substance: BORTEZOMIB
     Dosage: DAYS 1 AND 6
     Route: 065
     Dates: start: 201811
  10. THALIDOMIDE [Concomitant]
     Active Substance: THALIDOMIDE
     Dosage: DAYS 1-21
     Route: 048
     Dates: start: 202002
  11. ENDOXAN 1G [Suspect]
     Active Substance: CYCLOPHOSPHAMIDE
     Dosage: INJECTION FOR INFUSION, LDC
     Route: 042
     Dates: start: 20200507, end: 20200509
  12. NAHCO3 [Concomitant]
     Active Substance: SODIUM BICARBONATE
     Indication: PRODUCT USED FOR UNKNOWN INDICATION
     Dosage: NOT PROVIDED
     Route: 065
  13. DOXORUBICIN [Concomitant]
     Active Substance: DOXORUBICIN
     Indication: PLASMA CELL MYELOMA
     Dosage: DAYS 3-6
     Route: 065
     Dates: start: 201811
  14. DOXORUBICIN [Concomitant]
     Active Substance: DOXORUBICIN
     Dosage: D1-3
     Route: 065
     Dates: start: 20200416
  15. DEXAMETHASONE. [Concomitant]
     Active Substance: DEXAMETHASONE
     Dosage: NOT PROVIDED
     Route: 065
     Dates: start: 20200512, end: 20200512
  16. THALIDOMIDE [Concomitant]
     Active Substance: THALIDOMIDE
     Dosage: D1-5
     Route: 048
     Dates: start: 20200416
  17. ENDOXAN 1G [Suspect]
     Active Substance: CYCLOPHOSPHAMIDE
     Dosage: INJECTION FOR INFUSION
     Route: 065
     Dates: start: 20200519, end: 20200519
  18. DEXAMETHASONE. [Concomitant]
     Active Substance: DEXAMETHASONE
     Dosage: NOT PROVIDED
     Route: 065
     Dates: start: 20200513, end: 20200514
  19. DEXAMETHASONE. [Concomitant]
     Active Substance: DEXAMETHASONE
     Dosage: DAYS 1-4,8,15,16
     Route: 065
     Dates: start: 202002
  20. VELCADE [Concomitant]
     Active Substance: BORTEZOMIB
     Dosage: DAYS 1, 4
     Route: 065
     Dates: start: 201903
  21. ENDOXAN 1G [Suspect]
     Active Substance: CYCLOPHOSPHAMIDE
     Indication: NEUROTOXICITY
     Dosage: INJECTION FOR INFUSION, DAYS 4-7
     Route: 065
     Dates: start: 201912
  22. LEVETIRACETAM. [Concomitant]
     Active Substance: LEVETIRACETAM
     Indication: PROPHYLAXIS
     Dosage: NOT PROVIDED
     Route: 065
  23. DOXORUBICIN [Concomitant]
     Active Substance: DOXORUBICIN
     Dosage: DAYS 1-4
     Route: 065
     Dates: start: 201907
  24. DEXAMETHASONE. [Concomitant]
     Active Substance: DEXAMETHASONE
     Dosage: D1, 8
     Route: 065
     Dates: start: 20200325
  25. DEXAMETHASONE. [Concomitant]
     Active Substance: DEXAMETHASONE
     Dosage: DAYS 1-4,8,15,16,
     Route: 065
     Dates: start: 201912
  26. VELCADE [Concomitant]
     Active Substance: BORTEZOMIB
     Dosage: DAYS 1, 4
     Route: 065
     Dates: start: 201907
  27. VELCADE [Concomitant]
     Active Substance: BORTEZOMIB
     Dosage: DAYS 1, 4
     Route: 065
     Dates: start: 201909
  28. ENDOXAN 1G [Suspect]
     Active Substance: CYCLOPHOSPHAMIDE
     Dosage: INJECTION FOR INFUSION, SECOND BRIDGING THERAPY OF VDT-PACE, D1-3
     Route: 065
     Dates: start: 20200416
  29. FLUDARABINE [Suspect]
     Active Substance: FLUDARABINE PHOSPHATE
     Indication: PLASMA CELL MYELOMA
     Dosage: INJECTION FOR INFUSION, LDC
     Route: 042
     Dates: start: 20200507, end: 20200509
  30. NOXAFIL [Concomitant]
     Active Substance: POSACONAZOLE
     Indication: PROPHYLAXIS
     Dosage: NOT PROVIDED
     Route: 065
  31. G-CSF [Concomitant]
     Active Substance: GRANULOCYTE COLONY-STIMULATING FACTOR NOS
     Dosage: CRS THERAPY
     Route: 065
     Dates: start: 20200521
  32. ETOPOSIDE. [Concomitant]
     Active Substance: ETOPOSIDE
     Dosage: DAYS 4,5,7
     Route: 065
     Dates: start: 202002
  33. ETOPOSIDE. [Concomitant]
     Active Substance: ETOPOSIDE
     Dosage: D1-3
     Route: 065
     Dates: start: 20200416
  34. DOXORUBICIN [Concomitant]
     Active Substance: DOXORUBICIN
     Dosage: DAYS 1-4
     Route: 065
     Dates: start: 201909
  35. DEXAMETHASONE. [Concomitant]
     Active Substance: DEXAMETHASONE
     Dosage: D1-4
     Route: 065
     Dates: start: 20200416
  36. DEXAMETHASONE. [Concomitant]
     Active Substance: DEXAMETHASONE
     Dosage: DAYS 1-8
     Route: 065
     Dates: start: 201811
  37. VELCADE [Concomitant]
     Active Substance: BORTEZOMIB
     Dosage: DAYS 1, 4, 10, 14
     Route: 065
     Dates: start: 201901
  38. THALIDOMIDE [Concomitant]
     Active Substance: THALIDOMIDE
     Dosage: DAYS 1-21
     Route: 048
     Dates: start: 201912
  39. MEROPENEM. [Concomitant]
     Active Substance: MEROPENEM
     Indication: PROPHYLAXIS
     Dosage: NOT PROVIDED
     Route: 065
     Dates: start: 20200517
  40. DOXORUBICIN [Concomitant]
     Active Substance: DOXORUBICIN
     Dosage: DAYS 1-4
     Route: 065
     Dates: start: 201903
  41. DEXAMETHASONE. [Concomitant]
     Active Substance: DEXAMETHASONE
     Dosage: DAYS 0, 1, 1, 4/5, 10/11, 14/15
     Route: 065
     Dates: start: 201902
  42. DEXAMETHASONE. [Concomitant]
     Active Substance: DEXAMETHASONE
     Dosage: DAYS 1-4,7,15,16
     Route: 065
     Dates: start: 201911
  43. VELCADE [Concomitant]
     Active Substance: BORTEZOMIB
     Dosage: D1, 8, 11
     Route: 065
     Dates: start: 20200325
  44. VELCADE [Concomitant]
     Active Substance: BORTEZOMIB
     Dosage: D1, 4
     Route: 065
     Dates: start: 20200416
  45. THALIDOMIDE [Concomitant]
     Active Substance: THALIDOMIDE
     Indication: PLASMA CELL MYELOMA
     Dosage: DAYS 1-21
     Route: 048
     Dates: start: 201911
  46. PIPERACILLIN/TAZOBACTAM [Concomitant]
     Active Substance: PIPERACILLIN SODIUM\TAZOBACTAM SODIUM
     Indication: PYREXIA
     Dosage: NOT PROVIDED
     Route: 065
     Dates: start: 20200512, end: 20200512
  47. VIMPAT [Concomitant]
     Active Substance: LACOSAMIDE
     Indication: SEIZURE PROPHYLAXIS
     Dosage: NOT PROVIDED
     Route: 065
     Dates: start: 20200513
  48. ENDOXAN 1G [Suspect]
     Active Substance: CYCLOPHOSPHAMIDE
     Indication: CYTOKINE RELEASE SYNDROME
     Dosage: INJECTION FOR INFUSION, DAYS 4-7
     Route: 065
     Dates: start: 20191107
  49. MEROPENEM. [Concomitant]
     Active Substance: MEROPENEM
     Route: 065
     Dates: start: 20200518
  50. NOXAFIL [Concomitant]
     Active Substance: POSACONAZOLE
     Route: 065
     Dates: start: 20200518
  51. ETOPOSIDE. [Concomitant]
     Active Substance: ETOPOSIDE
     Indication: PLASMA CELL MYELOMA
     Dosage: DAYS 4-7
     Route: 065
     Dates: start: 201911
  52. CISPLATIN. [Concomitant]
     Active Substance: CISPLATIN
     Indication: PLASMA CELL MYELOMA
     Dosage: D1-4
     Route: 065
     Dates: start: 20200416
  53. VELCADE [Concomitant]
     Active Substance: BORTEZOMIB
     Indication: PLASMA CELL MYELOMA
     Dosage: NOT PROVIDED
     Route: 065
     Dates: start: 201706, end: 201707
  54. VELCADE [Concomitant]
     Active Substance: BORTEZOMIB
     Dosage: DAYS 1, 4, 10, 14
     Route: 065
     Dates: start: 201902
  55. ENDOXAN 1G [Suspect]
     Active Substance: CYCLOPHOSPHAMIDE
     Dosage: INJECTION FOR INFUSION, DAYS 4, 5, 7,
     Route: 065
     Dates: start: 202002
  56. G-CSF [Concomitant]
     Active Substance: GRANULOCYTE COLONY-STIMULATING FACTOR NOS
     Route: 065
     Dates: start: 20200518
  57. RASBURICASE [Concomitant]
     Active Substance: RASBURICASE
     Indication: PROPHYLAXIS
     Dosage: NOT PROVIDED
     Route: 065
  58. DEXAMETHASONE. [Concomitant]
     Active Substance: DEXAMETHASONE
     Indication: NEUROTOXICITY
     Route: 065
     Dates: start: 20200517, end: 20200517
  59. DEXAMETHASONE. [Concomitant]
     Active Substance: DEXAMETHASONE
     Dosage: NOT PROVIDED
     Route: 065
     Dates: start: 201706, end: 201707
  60. DEXAMETHASONE. [Concomitant]
     Active Substance: DEXAMETHASONE
     Dosage: DAYS 0, 1, 1, 4/5, 10/11, 14/15
     Route: 065
     Dates: start: 201901

REACTIONS (4)
  - Haemophagocytic lymphohistiocytosis [Not Recovered/Not Resolved]
  - Cytokine release syndrome [Fatal]
  - Fungal sepsis [Fatal]
  - Neurotoxicity [Not Recovered/Not Resolved]

NARRATIVE: CASE EVENT DATE: 20200512
